FAERS Safety Report 5903647-6 (Version None)
Quarter: 2008Q3

REPORT INFORMATION
  Report Type: 
  Country: None (occurrence: None)
  Receive Date: 20080930
  Receipt Date: 20080917
  Transmission Date: 20090109
  Serious: Yes (Death, Other)
  Sender: FDA-Public Use
  Company Number: US-ELI_LILLY_AND_COMPANY-US200809002348

PATIENT
  Sex: Female

DRUGS (10)
  1. BYETTA [Suspect]
     Dosage: 5 UG, 2/D
     Route: 058
     Dates: start: 20060607, end: 20060704
  2. BYETTA [Suspect]
     Dosage: 10 UG, 2/D
     Route: 058
     Dates: start: 20060705
  3. GLIPIZIDE [Concomitant]
     Dosage: UNK, UNKNOWN
  4. TRIAMTERENE AND HYDROCHLOROTHIAZIDE [Concomitant]
     Dosage: UNK, UNKNOWN
  5. ADVICOR [Concomitant]
     Dosage: UNK, UNKNOWN
  6. ENALAPRIL MALEATE [Concomitant]
     Dosage: UNK, UNKNOWN
  7. VITAMIN D [Concomitant]
     Dosage: UNK, UNKNOWN
  8. MULTI-VITAMIN [Concomitant]
     Dosage: UNK, UNKNOWN
  9. CALCIUM [Concomitant]
     Dosage: UNK, UNKNOWN
  10. ASPIRIN [Concomitant]
     Dosage: UNK, UNKNOWN

REACTIONS (3)
  - BILE DUCT OBSTRUCTION [None]
  - COLON CANCER STAGE IV [None]
  - PANCREATITIS [None]
